FAERS Safety Report 5871036-9 (Version None)
Quarter: 2008Q3

REPORT INFORMATION
  Report Type: 
  Country: None (occurrence: None)
  Receive Date: 20080829
  Receipt Date: 20080715
  Transmission Date: 20090109
  Serious: No
  Sender: FDA-Public Use
  Company Number: 002#2#2008-00333

PATIENT
  Age: 60 Year
  Sex: Male
  Weight: 68.0396 kg

DRUGS (3)
  1. NEUPRO [Suspect]
     Indication: PARKINSON'S DISEASE
     Dosage: 6MG/ 24H, 1 IN 1 D, TRANSDERMAL
     Route: 062
     Dates: start: 20070901
  2. STALEVO 100 [Concomitant]
  3. MERCAPTOPUR [Concomitant]

REACTIONS (2)
  - ABNORMAL DREAMS [None]
  - PHARMACEUTICAL PRODUCT COMPLAINT [None]
